FAERS Safety Report 12694701 (Version 2)
Quarter: 2016Q3

REPORT INFORMATION
  Report Type: Spontaneous
  Country: US (occurrence: US)
  Receive Date: 20160829
  Receipt Date: 20160905
  Transmission Date: 20161109
  Serious: Yes (Hospitalization)
  Sender: FDA-Public Use
  Company Number: US-JNJFOC-20160814029

PATIENT
  Age: 54 Year
  Sex: Male
  Weight: 81.65 kg

DRUGS (3)
  1. DURAGESIC [Suspect]
     Active Substance: FENTANYL
     Indication: SPINAL PAIN
     Route: 062
     Dates: start: 2002
  2. DURAGESIC [Suspect]
     Active Substance: FENTANYL
     Indication: SPINAL PAIN
     Route: 062
  3. DURAGESIC [Suspect]
     Active Substance: FENTANYL
     Indication: SPINAL PAIN
     Route: 062

REACTIONS (10)
  - Drug ineffective [Unknown]
  - Drug tolerance [Unknown]
  - Rib fracture [Unknown]
  - Spinal disorder [Unknown]
  - Fall [Unknown]
  - Muscle spasticity [Unknown]
  - Arachnoiditis [Unknown]
  - Pain [Not Recovered/Not Resolved]
  - Clavicle fracture [Not Recovered/Not Resolved]
  - Melanoma recurrent [Unknown]

NARRATIVE: CASE EVENT DATE: 201607
